FAERS Safety Report 9507157 (Version 1)
Quarter: 2013Q3

REPORT INFORMATION
  Report Type: Spontaneous
  Country: HR (occurrence: None)
  Receive Date: 20130904
  Receipt Date: 20130904
  Transmission Date: 20140515
  Serious: Yes (Death)
  Sender: FDA-Public Use
  Company Number: FK201303829

PATIENT
  Age: 35 Year
  Sex: Male

DRUGS (3)
  1. FLUOROURACIL [Suspect]
     Indication: COLON NEOPLASM
     Route: 040
  2. IRINOTECAN (IRINOTECAN) [Concomitant]
  3. LEUCOVORIN (CALCIUM FOLINATE) [Concomitant]

REACTIONS (9)
  - Hypotension [None]
  - Tachycardia [None]
  - Hypoxia [None]
  - Arrhythmia [None]
  - Cardiac arrest [None]
  - Leukopenia [None]
  - Thrombocytopenia [None]
  - Gastrointestinal inflammation [None]
  - Mucosal inflammation [None]
